FAERS Safety Report 14026205 (Version 1)
Quarter: 2017Q3

REPORT INFORMATION
  Report Type: Spontaneous
  Country: IT (occurrence: IT)
  Receive Date: 20170929
  Receipt Date: 20170929
  Transmission Date: 20171128
  Serious: Yes (Other)
  Sender: FDA-Public Use
  Company Number: IT-MYLANLABS-2017M1060764

PATIENT
  Age: 45 Year
  Sex: Male

DRUGS (1)
  1. BUPRENORPHINE. [Suspect]
     Active Substance: BUPRENORPHINE
     Indication: PRODUCT USED FOR UNKNOWN INDICATION
     Dosage: RECEIVING HIGH-DOSE SUBLINGUAL BUPRENORPHINE FOR MORE THAN 5 YEARS, THREE TO FOUR TIMES A DAY
     Route: 042

REACTIONS (3)
  - Incorrect route of drug administration [Unknown]
  - Drug abuse [Unknown]
  - Peripheral swelling [Unknown]
